FAERS Safety Report 7073822-9 (Version None)
Quarter: 2010Q4

REPORT INFORMATION
  Report Type: 
  Country: None (occurrence: None)
  Receive Date: 20101029
  Receipt Date: 20100816
  Transmission Date: 20110411
  Serious: No
  Sender: FDA-Public Use
  Company Number: A0876813A

PATIENT
  Age: 67 Year
  Sex: Male

DRUGS (13)
  1. ADVAIR DISKUS 100/50 [Suspect]
     Indication: CHRONIC OBSTRUCTIVE PULMONARY DISEASE
     Route: 055
     Dates: start: 20100101
  2. SPIRIVA [Suspect]
     Indication: CHRONIC OBSTRUCTIVE PULMONARY DISEASE
     Dosage: 18MCG PER DAY
     Route: 055
     Dates: start: 20080101
  3. TEKTURNA [Concomitant]
     Route: 048
  4. SIMVASTATIN [Concomitant]
     Indication: BLOOD CHOLESTEROL INCREASED
     Route: 048
  5. TERAZOSIN HCL [Concomitant]
  6. KLOR-CON [Concomitant]
  7. COZAAR [Concomitant]
  8. ALLOPURINOL [Concomitant]
  9. HYDROCHLOROTHIAZIDE [Concomitant]
  10. FUROSEMIDE [Concomitant]
     Indication: FLUID RETENTION
     Dosage: 40MG PER DAY
  11. OMEPRAZOLE [Concomitant]
     Route: 048
  12. THEOPHYLLINE [Concomitant]
     Indication: CHRONIC OBSTRUCTIVE PULMONARY DISEASE
     Dosage: 200MG TWICE PER DAY
     Route: 048
  13. UNKNOWN [Concomitant]
     Indication: CHRONIC OBSTRUCTIVE PULMONARY DISEASE
     Route: 048

REACTIONS (5)
  - DIPLOPIA [None]
  - EYE PAIN [None]
  - HEART RATE INCREASED [None]
  - OCULAR HYPERAEMIA [None]
  - VISION BLURRED [None]
